FAERS Safety Report 14582666 (Version 8)
Quarter: 2018Q4

REPORT INFORMATION
  Report Type: Report from Study
  Country: None (occurrence: US)
  Receive Date: 20180228
  Receipt Date: 20181205
  Transmission Date: 20190204
  Serious: Yes (Hospitalization, Other)
  Sender: FDA-Public Use
  Company Number: US-ABBVIE-18K-163-2258351-00

PATIENT
  Age: 67 Year
  Sex: Female
  Weight: 89.89 kg

DRUGS (21)
  1. RANITIDINE. [Concomitant]
     Active Substance: RANITIDINE
     Indication: OESOPHAGITIS
  2. ZYRTEC [Concomitant]
     Active Substance: CETIRIZINE HYDROCHLORIDE
     Indication: HYPERSENSITIVITY
  3. NIFEDIPINE. [Concomitant]
     Active Substance: NIFEDIPINE
     Indication: HYPERTENSION
  4. CALCIUM [Concomitant]
     Active Substance: CALCIUM
     Indication: MINERAL SUPPLEMENTATION
  5. EPIPEN [Concomitant]
     Active Substance: EPINEPHRINE
     Indication: ARTHROPOD STING
  6. HUMIRA [Suspect]
     Active Substance: ADALIMUMAB
     Route: 058
  7. LEVOTHYROXINE. [Concomitant]
     Active Substance: LEVOTHYROXINE
     Indication: HYPOTHYROIDISM
  8. TYLENOL ARTHRITIS PAIN [Concomitant]
     Active Substance: ACETAMINOPHEN
     Indication: PAIN
  9. VITAMIN B12 [Concomitant]
     Active Substance: CYANOCOBALAMIN
     Indication: PERNICIOUS ANAEMIA
  10. CARVEDILOL. [Concomitant]
     Active Substance: CARVEDILOL
     Indication: HYPERTENSION
  11. RAMIPRIL. [Concomitant]
     Active Substance: RAMIPRIL
     Indication: HYPERTENSION
  12. WELCHOL [Concomitant]
     Active Substance: COLESEVELAM HYDROCHLORIDE
     Indication: BLOOD CHOLESTEROL INCREASED
  13. LEFLUNOMIDE. [Concomitant]
     Active Substance: LEFLUNOMIDE
     Indication: INFLAMMATION
  14. FOLIC ACID. [Concomitant]
     Active Substance: FOLIC ACID
     Indication: VITAMIN SUPPLEMENTATION
  15. HUMIRA [Suspect]
     Active Substance: ADALIMUMAB
     Indication: RHEUMATOID ARTHRITIS
     Route: 058
     Dates: start: 20161019
  16. DEXILANT [Suspect]
     Active Substance: DEXLANSOPRAZOLE
     Indication: OESOPHAGITIS
     Route: 065
     Dates: start: 201709, end: 201801
  17. FLUOXETINE [Concomitant]
     Active Substance: FLUOXETINE HYDROCHLORIDE
     Indication: SEASONAL AFFECTIVE DISORDER
  18. VITAMIN C [Concomitant]
     Active Substance: ASCORBIC ACID
     Indication: VITAMIN SUPPLEMENTATION
  19. BENADRYL [Concomitant]
     Active Substance: DIPHENHYDRAMINE HYDROCHLORIDE
     Indication: HYPERSENSITIVITY
  20. NOVOLOG PUMP [Concomitant]
     Indication: TYPE 2 DIABETES MELLITUS
  21. CHLORTHALIDONE. [Concomitant]
     Active Substance: CHLORTHALIDONE
     Indication: DIURETIC THERAPY

REACTIONS (50)
  - Inflammatory marker increased [Not Recovered/Not Resolved]
  - Scoliosis [Unknown]
  - Fall [Unknown]
  - Erythema [Unknown]
  - Pain in extremity [Unknown]
  - Haemoglobin decreased [Recovered/Resolved]
  - Upper gastrointestinal haemorrhage [Recovered/Resolved]
  - Post procedural complication [Recovering/Resolving]
  - Sensitivity to weather change [Not Recovered/Not Resolved]
  - Injection site warmth [Unknown]
  - Blood test abnormal [Unknown]
  - Diarrhoea [Recovered/Resolved]
  - Injection site pain [Unknown]
  - Back pain [Unknown]
  - Pain [Unknown]
  - Swollen tongue [Recovered/Resolved]
  - Gastrointestinal polyp [Recovered/Resolved]
  - Bursitis [Unknown]
  - Insomnia [Unknown]
  - Respiratory tract infection [Unknown]
  - Speech disorder [Recovered/Resolved]
  - Finger deformity [Unknown]
  - Drug hypersensitivity [Unknown]
  - Osteoarthritis [Unknown]
  - Retinal disorder [Unknown]
  - Cough [Recovering/Resolving]
  - Pruritus [Unknown]
  - Sleep disorder [Unknown]
  - Irritable bowel syndrome [Unknown]
  - Cough [Unknown]
  - Tongue ulceration [Recovered/Resolved]
  - Colitis [Unknown]
  - Depression [Unknown]
  - Upper limb fracture [Unknown]
  - Myalgia [Unknown]
  - Sinusitis [Unknown]
  - Gastrointestinal candidiasis [Unknown]
  - Anaphylactic reaction [Recovered/Resolved]
  - Blood pressure abnormal [Unknown]
  - Swelling [Unknown]
  - Musculoskeletal pain [Unknown]
  - Anaphylactic shock [Recovered/Resolved]
  - Oesophagitis [Recovering/Resolving]
  - Tongue biting [Recovered/Resolved]
  - Dysphonia [Unknown]
  - Fatigue [Unknown]
  - Emotional disorder [Unknown]
  - Headache [Recovering/Resolving]
  - Therapeutic response shortened [Unknown]
  - Arthralgia [Unknown]

NARRATIVE: CASE EVENT DATE: 2016
